FAERS Safety Report 16704043 (Version 1)
Quarter: 2019Q3

REPORT INFORMATION
  Report Type: Spontaneous
  Country: FR (occurrence: FR)
  Receive Date: 20190814
  Receipt Date: 20190814
  Transmission Date: 20191004
  Serious: Yes (Other)
  Sender: FDA-Public Use
  Company Number: FR-MYLANLABS-2019M1075220

PATIENT
  Age: 56 Year
  Sex: Male

DRUGS (5)
  1. TRIATEC                            /00885601/ [Concomitant]
     Active Substance: RAMIPRIL
     Dosage: UNK
     Route: 048
     Dates: start: 2014
  2. MONASCUS PURPUREUS [Interacting]
     Active Substance: RED YEAST
     Indication: HYPERCHOLESTEROLAEMIA
     Dosage: 4 DOSAGE FORM, QD
     Route: 048
     Dates: start: 201901, end: 20190212
  3. ATORVASTATIN [Suspect]
     Active Substance: ATORVASTATIN
     Indication: ATHEROSCLEROSIS PROPHYLAXIS
     Dosage: UNK
     Route: 048
     Dates: start: 2014
  4. KARDEGIC [Concomitant]
     Active Substance: ASPIRIN DL-LYSINE
     Dosage: 75 MILLIGRAM, QD
     Route: 048
     Dates: start: 2014
  5. CURCUMA [Interacting]
     Active Substance: HERBALS\TURMERIC
     Indication: PRODUCT USED FOR UNKNOWN INDICATION
     Dosage: 6 DOSAGE FORM, QD
     Route: 048
     Dates: start: 201812

REACTIONS (2)
  - Hepatitis [Unknown]
  - Drug interaction [Unknown]

NARRATIVE: CASE EVENT DATE: 20190212
